FAERS Safety Report 18059246 (Version 1)
Quarter: 2020Q3

REPORT INFORMATION
  Report Type: Spontaneous
  Country: HN (occurrence: HN)
  Receive Date: 20200723
  Receipt Date: 20200723
  Transmission Date: 20201103
  Serious: Yes (Other)
  Sender: FDA-Public Use
  Company Number: HN-PFIZER INC-2020278658

PATIENT
  Age: 76 Year
  Sex: Male

DRUGS (1)
  1. LIPITOR [Suspect]
     Active Substance: ATORVASTATIN CALCIUM
     Indication: CEREBROVASCULAR ACCIDENT
     Dosage: 40 MG, DAILY
     Route: 048

REACTIONS (3)
  - Hypertension [Unknown]
  - Disease recurrence [Unknown]
  - Cerebrovascular accident [Unknown]

NARRATIVE: CASE EVENT DATE: 20200212
